FAERS Safety Report 8882144 (Version 2)
Quarter: 2012Q4

REPORT INFORMATION
  Report Type: Report from Study
  Country: US (occurrence: US)
  Receive Date: 20121102
  Receipt Date: 20121126
  Transmission Date: 20130627
  Serious: Yes (Death, Hospitalization)
  Sender: FDA-Public Use
  Company Number: US-ROCHE-1150367

PATIENT
  Age: 71 Year
  Sex: Male
  Weight: 82.6 kg

DRUGS (2)
  1. BEVACIZUMAB [Suspect]
     Indication: GLIOBLASTOMA MULTIFORME
     Dosage: over 90 min on day 1
     Route: 042
     Dates: start: 20121008
  2. DASATINIB [Suspect]
     Indication: GLIOBLASTOMA MULTIFORME
     Dosage: for 14 days
     Route: 048
     Dates: start: 20121008, end: 20121023

REACTIONS (5)
  - Somnolence [Unknown]
  - Disease progression [Fatal]
  - Fall [None]
  - Refusal of treatment by patient [None]
  - Muscular weakness [None]
